FAERS Safety Report 26151434 (Version 1)
Quarter: 2025Q4

REPORT INFORMATION
  Report Type: Spontaneous
  Country: JP (occurrence: JP)
  Receive Date: 20251212
  Receipt Date: 20251212
  Transmission Date: 20260117
  Serious: Yes (Other)
  Sender: AMGEN
  Company Number: JP-AMGEN-JPNSP2025240430

PATIENT
  Age: 78 Year
  Sex: Female

DRUGS (8)
  1. FILGRASTIM [Suspect]
     Active Substance: FILGRASTIM
     Indication: Febrile neutropenia
     Dosage: 75 MICROGRAM, QD (FILGRASTIM WAS GIVEN FOR SEVEN CONSECUTIVE DAYS STARTING ON DAY 12)
     Route: 065
  2. FILGRASTIM [Suspect]
     Active Substance: FILGRASTIM
     Indication: Cytopenia
     Dosage: 75 MICROGRAM (BEGINNING IN THE SECOND CYCLE)(RE-ADMINISTRATION OF FILGRASTIM) (FROM THE SECOND TO TH
     Route: 065
  3. RITUXIMAB [Concomitant]
     Active Substance: RITUXIMAB
     Indication: Diffuse large B-cell lymphoma stage II
     Dosage: UNK
  4. RITUXIMAB [Concomitant]
     Active Substance: RITUXIMAB
     Indication: Diffuse large B-cell lymphoma recurrent
  5. CYCLOPHOSPHAMIDE [Concomitant]
     Active Substance: CYCLOPHOSPHAMIDE
     Indication: Diffuse large B-cell lymphoma stage II
     Dosage: UNK
  6. DOXORUBICIN [Concomitant]
     Active Substance: DOXORUBICIN
     Indication: Diffuse large B-cell lymphoma stage II
     Dosage: UNK
  7. VINCRISTINE [Concomitant]
     Active Substance: VINCRISTINE
     Indication: Diffuse large B-cell lymphoma stage II
     Dosage: UNK
  8. PREDNISOLONE [Concomitant]
     Active Substance: PREDNISOLONE
     Indication: Diffuse large B-cell lymphoma stage II
     Dosage: 40 MILLIGRAM (CORRESPONDING TO 1 MG/KG)/DOSE WAS SUBSEQUENTLY TAPERED:INITIALLY BY 5 MG EVERY 1-2 WE
     Route: 048

REACTIONS (19)
  - Vasculitis [Recovered/Resolved]
  - Myelosuppression [Unknown]
  - Febrile neutropenia [Unknown]
  - Diffuse large B-cell lymphoma recurrent [Unknown]
  - Neck pain [Unknown]
  - Neutrophil count increased [Unknown]
  - Lymphocyte count decreased [Unknown]
  - Blood sodium decreased [Unknown]
  - Blood chloride decreased [Unknown]
  - Blood calcium decreased [Unknown]
  - Blood urea decreased [Unknown]
  - Alanine aminotransferase increased [Unknown]
  - Gamma-glutamyltransferase increased [Unknown]
  - Interleukin-2 receptor increased [Unknown]
  - Blood immunoglobulin M decreased [Unknown]
  - Complement factor C3 increased [Unknown]
  - Complement factor C4 increased [Unknown]
  - Total complement activity increased [Unknown]
  - Blood alkaline phosphatase increased [Unknown]
